FAERS Safety Report 15722824 (Version 1)
Quarter: 2018Q4

REPORT INFORMATION
  Report Type: Spontaneous
  Country: US (occurrence: US)
  Receive Date: 20181130
  Receipt Date: 20181130
  Transmission Date: 20190205
  Serious: No
  Sender: FDA-Public Use
  Company Number: None

PATIENT
  Age: 57 Year
  Sex: Male

DRUGS (9)
  1. ZOFRAN [Concomitant]
     Active Substance: ONDANSETRON HYDROCHLORIDE
  2. MAGNESIUM [Concomitant]
     Active Substance: MAGNESIUM
  3. ZYTIGA [Suspect]
     Active Substance: ABIRATERONE ACETATE
     Indication: PROSTATE CANCER
     Route: 048
     Dates: start: 20180919
  4. ZINC. [Concomitant]
     Active Substance: ZINC
  5. CALCIUM [Concomitant]
     Active Substance: CALCIUM
  6. MORPHINE [Concomitant]
     Active Substance: MORPHINE
  7. TYLENOL [Concomitant]
     Active Substance: ACETAMINOPHEN
  8. LUPROM [Concomitant]
  9. GRAPE [Concomitant]
     Active Substance: CONCORD GRAPE\GRAPE

REACTIONS (2)
  - Nausea [None]
  - Gastrooesophageal reflux disease [None]
